FAERS Safety Report 9145559 (Version 1)
Quarter: 2013Q1

REPORT INFORMATION
  Report Type: Spontaneous
  Country: US (occurrence: US)
  Receive Date: 20130307
  Receipt Date: 20130307
  Transmission Date: 20140127
  Serious: No
  Sender: FDA-Public Use
  Company Number: US-PFIZER INC-2013077739

PATIENT
  Age: 58 Year
  Sex: Female
  Weight: 46.26 kg

DRUGS (4)
  1. CHANTIX [Suspect]
     Indication: SMOKING CESSATION THERAPY
     Dosage: 1 MG TWO TIMES A DAY
     Dates: start: 2013
  2. MORPHINE [Concomitant]
     Indication: SLEEP DISORDER
     Dosage: 45 MG, 2X/DAY
  3. HYDROCODONE [Concomitant]
     Dosage: EIGHT PILLS IN TOTAL IN A DAY
  4. AMBIEN [Concomitant]
     Indication: SLEEP DISORDER
     Dosage: 10 MG DAILY

REACTIONS (3)
  - Nausea [Not Recovered/Not Resolved]
  - Vomiting [Unknown]
  - Muscle spasms [Recovering/Resolving]
